FAERS Safety Report 20003072 (Version 3)
Quarter: 2022Q1

REPORT INFORMATION
  Report Type: Spontaneous
  Country: US (occurrence: US)
  Receive Date: 20211027
  Receipt Date: 20220214
  Transmission Date: 20220423
  Serious: No
  Sender: FDA-Public Use
  Company Number: US-PFIZER INC-202101209223

PATIENT

DRUGS (2)
  1. TOZINAMERAN [Suspect]
     Active Substance: TOZINAMERAN
     Indication: COVID-19 immunisation
     Dosage: DOSE NUMBER UNKNOWN, SINGLE
  2. LIPITOR [Suspect]
     Active Substance: ATORVASTATIN CALCIUM
     Dosage: 18 MG
     Dates: start: 20210524

REACTIONS (6)
  - Renal pain [Unknown]
  - Hepatic enzyme increased [Unknown]
  - Myalgia [Unknown]
  - Hepatic pain [Unknown]
  - Ocular icterus [Unknown]
  - Asthenia [Unknown]
